FAERS Safety Report 20601392 (Version 1)
Quarter: 2022Q1

REPORT INFORMATION
  Report Type: Other
  Country: IN (occurrence: IN)
  Receive Date: 20220316
  Receipt Date: 20220316
  Transmission Date: 20220423
  Serious: Yes (Other)
  Sender: FDA-Public Use
  Company Number: IN-DEXPHARM-20220321

PATIENT
  Age: 62 Year
  Sex: Female

DRUGS (3)
  1. ASPIRIN [Concomitant]
     Active Substance: ASPIRIN
     Indication: Hypertension
  2. ESOMEPRAZOLE [Suspect]
     Active Substance: ESOMEPRAZOLE
     Indication: Gastrooesophageal reflux disease
  3. NEBIVOLOL [Concomitant]
     Active Substance: NEBIVOLOL
     Indication: Hypertension

REACTIONS (1)
  - Subacute cutaneous lupus erythematosus [Recovered/Resolved]
